FAERS Safety Report 5868680-1 (Version None)
Quarter: 2008Q3

REPORT INFORMATION
  Report Type: 
  Country: None (occurrence: None)
  Receive Date: 20080903
  Receipt Date: 20080826
  Transmission Date: 20090109
  Serious: Yes (Other)
  Sender: FDA-Public Use
  Company Number: PHEH2008US06142

PATIENT
  Age: 40 Year
  Sex: Female

DRUGS (2)
  1. ZOMETA [Suspect]
     Dosage: ONCE PER MONTH
     Route: 042
     Dates: start: 20080601
  2. AREDIA [Suspect]
     Dosage: UNK
     Dates: end: 20080401

REACTIONS (5)
  - BONE PAIN [None]
  - BRAIN NEOPLASM [None]
  - HYPOAESTHESIA FACIAL [None]
  - METASTASES TO CENTRAL NERVOUS SYSTEM [None]
  - PYREXIA [None]
